FAERS Safety Report 7689906-8 (Version None)
Quarter: 2011Q3

REPORT INFORMATION
  Report Type: 
  Country: None (occurrence: None)
  Receive Date: 20110818
  Receipt Date: 20110810
  Transmission Date: 20111222
  Serious: No
  Sender: FDA-Public Use
  Company Number: US-BIOGENIDEC-2011BI021443

PATIENT
  Sex: Female

DRUGS (1)
  1. TYSABRI [Suspect]
     Indication: MULTIPLE SCLEROSIS
     Route: 042
     Dates: start: 20110512

REACTIONS (11)
  - THROMBOSIS [None]
  - MUSCULOSKELETAL PAIN [None]
  - NAUSEA [None]
  - GAIT DISTURBANCE [None]
  - ARTHRALGIA [None]
  - ANXIETY [None]
  - PAIN IN EXTREMITY [None]
  - DIZZINESS [None]
  - HEADACHE [None]
  - PAIN [None]
  - HYPOTENSION [None]
